FAERS Safety Report 12338900 (Version 4)
Quarter: 2016Q4

REPORT INFORMATION
  Report Type: Spontaneous
  Country: US (occurrence: US)
  Receive Date: 20160505
  Receipt Date: 20161230
  Transmission Date: 20170207
  Serious: Yes (Hospitalization, Other)
  Sender: FDA-Public Use
  Company Number: US-PFIZER INC-2016243785

PATIENT
  Age: 60 Year
  Sex: Female

DRUGS (1)
  1. ADVIL [Suspect]
     Active Substance: IBUPROFEN
     Indication: BACK PAIN
     Dosage: 1200 MG, UNK (6 TABLETS OF ADVIL 200 MG (EQUIVALENT TO 20.4 MG/KG))
     Route: 048

REACTIONS (3)
  - Product use issue [Unknown]
  - Toxicity to various agents [Recovering/Resolving]
  - Pancreatitis acute [Recovering/Resolving]
